FAERS Safety Report 14968811 (Version 3)
Quarter: 2018Q3

REPORT INFORMATION
  Report Type: Spontaneous
  Country: JP (occurrence: JP)
  Receive Date: 20180604
  Receipt Date: 20180809
  Transmission Date: 20181010
  Serious: Yes (Other)
  Sender: FDA-Public Use
  Company Number: JP-OTSUKA-2018_014125

PATIENT
  Age: 65 Year
  Sex: Male

DRUGS (10)
  1. EDARAVONE [Concomitant]
     Active Substance: EDARAVONE
     Dosage: 60 MG, DAILY DOSE
     Route: 065
  2. PLETAAL OD TABLETS 50MG [Suspect]
     Active Substance: CILOSTAZOL
     Indication: PROPHYLAXIS
  3. PHENYTOIN. [Concomitant]
     Active Substance: PHENYTOIN
     Indication: EPILEPSY
     Dosage: 100 MG, BID
     Route: 042
  4. PLETAAL OD TABLETS 50MG [Suspect]
     Active Substance: CILOSTAZOL
     Indication: CEREBRAL VASOCONSTRICTION
     Dosage: 200 MG, DAILY DOSE
     Route: 048
  5. ERIL [Suspect]
     Active Substance: ENALAPRIL MALEATE
     Indication: CEREBRAL VASOCONSTRICTION
     Dosage: 90 MG, DAILY DOSE
     Route: 041
  6. EDARAVONE [Concomitant]
     Active Substance: EDARAVONE
     Indication: ENDOTHELIAL DYSFUNCTION
     Dosage: 60 MG, DAILY DOSE
     Route: 065
  7. ERIL [Suspect]
     Active Substance: ENALAPRIL MALEATE
     Indication: PROPHYLAXIS
  8. OZAGREL HYDROCHLORIDE [Concomitant]
     Active Substance: OZAGREL HYDROCHLORIDE
     Indication: CEREBRAL VASOCONSTRICTION
     Dosage: 80 MG, DAILY DOSE
     Route: 065
  9. OZAGREL HYDROCHLORIDE [Concomitant]
     Active Substance: OZAGREL HYDROCHLORIDE
     Indication: PROPHYLAXIS
  10. PHENYTOIN. [Concomitant]
     Active Substance: PHENYTOIN
     Indication: PROPHYLAXIS

REACTIONS (2)
  - Product use in unapproved indication [Unknown]
  - Vasogenic cerebral oedema [Recovering/Resolving]

NARRATIVE: CASE EVENT DATE: 201306
